FAERS Safety Report 7937824-X (Version None)
Quarter: 2011Q4

REPORT INFORMATION
  Report Type: 
  Country: None (occurrence: None)
  Receive Date: 20111123
  Receipt Date: 20111114
  Transmission Date: 20120403
  Serious: Yes (Hospitalization)
  Sender: FDA-Public Use
  Company Number: FR-MERCK-1111USA02295

PATIENT
  Age: 77 Year
  Sex: Male

DRUGS (12)
  1. SPECIAFOLDINE [Concomitant]
     Route: 065
  2. HYZAAR [Suspect]
     Indication: HYPERTENSION
     Route: 065
     Dates: end: 20110907
  3. NEBCIN [Suspect]
     Indication: SKIN ULCER
     Route: 030
     Dates: start: 20110825, end: 20110831
  4. REPAGLINIDE [Concomitant]
     Dosage: (1 IN THE MORNING, 2 IN THE EVENING)
     Route: 065
  5. ACETAMINOPHEN [Concomitant]
     Route: 065
  6. GLUCOPHAGE [Suspect]
     Route: 048
     Dates: end: 20110907
  7. FENOFIBRATE [Suspect]
     Route: 048
     Dates: end: 20110908
  8. LAMALINE (OLD FORMULA) [Concomitant]
     Route: 065
  9. AVODART [Concomitant]
     Route: 065
  10. TAMSULOSIN HCL [Concomitant]
     Route: 065
  11. FORLAX [Concomitant]
     Dosage: 4000 IN THE DOSAGE TEXT
     Route: 065
  12. PLAVIX [Concomitant]
     Route: 065

REACTIONS (3)
  - ANURIA [None]
  - DEHYDRATION [None]
  - RENAL FAILURE ACUTE [None]
